FAERS Safety Report 5209191-6 (Version None)
Quarter: 2006Q4

REPORT INFORMATION
  Report Type: 
  Country: None (occurrence: None)
  Receive Date: 20061229
  Receipt Date: 20061213
  Transmission Date: 20070319
  Serious: Yes (Hospitalization, Other)
  Sender: FDA-Public Use
  Company Number: THYM-11190

PATIENT
  Age: 61 Year
  Sex: Female
  Weight: 88 kg

DRUGS (5)
  1. THYMOGLOBULIN [Suspect]
     Indication: HEART TRANSPLANT REJECTION
     Dosage: 88  MG QD IV
     Route: 042
     Dates: start: 20061204, end: 20061204
  2. THYMOGLOBULIN [Suspect]
     Indication: HEART TRANSPLANT REJECTION
     Dosage: 44 MG QD IV
     Route: 042
     Dates: start: 20061211, end: 20061212
  3. THYMOGLOBULIN [Suspect]
     Indication: HEART TRANSPLANT REJECTION
     Dosage: 44 MG QD IV
     Route: 042
     Dates: start: 20061214, end: 20061214
  4. CELLCEPT [Concomitant]
  5. STEROIDS (UNSPECIFIED) [Concomitant]

REACTIONS (1)
  - LYMPHOCYTE COUNT DECREASED [None]
